FAERS Safety Report 23284965 (Version 1)
Quarter: 2023Q4

REPORT INFORMATION
  Report Type: Spontaneous
  Country: US (occurrence: US)
  Receive Date: 20231211
  Receipt Date: 20231211
  Transmission Date: 20240110
  Serious: Yes (Other)
  Sender: FDA-Public Use
  Company Number: US-MIRATI-MT2023PM04497

PATIENT
  Sex: Female
  Weight: 53.515 kg

DRUGS (5)
  1. KRAZATI [Suspect]
     Active Substance: ADAGRASIB
     Indication: Lung neoplasm malignant
     Dosage: 600 MG, BID
     Route: 048
     Dates: start: 20230520, end: 20230619
  2. KRAZATI [Suspect]
     Active Substance: ADAGRASIB
     Indication: Non-small cell lung cancer stage IV
     Dosage: 400 MG, BID
     Dates: start: 20230711
  3. KRAZATI [Suspect]
     Active Substance: ADAGRASIB
     Dosage: 3 TABLETS IN THE MORNING 2 IN THE EVENING MONDAY AND THURSDAY AND REST OF THE WEEK 2 TABLETS IN MORN
     Dates: start: 20231130
  4. NAPROXEN [Concomitant]
     Active Substance: NAPROXEN
  5. LIDOCAINE [Concomitant]
     Active Substance: LIDOCAINE
     Indication: Gingival bleeding

REACTIONS (6)
  - Syncope [Recovered/Resolved]
  - Dizziness [Unknown]
  - Oedema peripheral [Recovered/Resolved]
  - Dyspnoea [Not Recovered/Not Resolved]
  - Joint swelling [Recovered/Resolved]
  - Paraesthesia [Recovered/Resolved]

NARRATIVE: CASE EVENT DATE: 20230523
